FAERS Safety Report 18972535 (Version 1)
Quarter: 2021Q1

REPORT INFORMATION
  Report Type: Spontaneous
  Country: US (occurrence: US)
  Receive Date: 20210304
  Receipt Date: 20210304
  Transmission Date: 20210420
  Serious: Yes (Other)
  Sender: FDA-Public Use
  Company Number: None

PATIENT
  Age: 27 Year
  Sex: Female

DRUGS (1)
  1. GAMUNEX [Suspect]
     Active Substance: HUMAN IMMUNOGLOBULIN G
     Route: 042

REACTIONS (5)
  - Agitation [None]
  - Infusion related reaction [None]
  - Pruritus [None]
  - Urticaria [None]
  - Ear pruritus [None]

NARRATIVE: CASE EVENT DATE: 20210201
